FAERS Safety Report 6884000-8 (Version None)
Quarter: 2010Q3

REPORT INFORMATION
  Report Type: 
  Country: None (occurrence: None)
  Receive Date: 20100729
  Receipt Date: 20100715
  Transmission Date: 20110219
  Serious: Yes (Hospitalization, Other)
  Sender: FDA-Public Use
  Company Number: PHHY2010FR46961

PATIENT
  Sex: Female

DRUGS (6)
  1. TEGRETOL [Suspect]
     Dosage: 200 (UNITS UNSPECIFIED) 1 DF IN THE MORNING AND 1 DF IN THE EVENING
     Dates: start: 20100415, end: 20100615
  2. EFFEXOR [Suspect]
     Indication: DEPRESSION
     Dosage: 1 DF, DAILY
     Dates: start: 20100413, end: 20100616
  3. ISOPTIN [Suspect]
     Indication: HYPERTENSION
     Dosage: 120 MG, BID
     Dates: start: 20100413, end: 20100616
  4. GYNO-PEVARYL [Suspect]
     Indication: VULVOVAGINAL MYCOTIC INFECTION
     Dosage: UNK
     Dates: start: 20100601
  5. NEXIUM [Concomitant]
     Dosage: 1 DF, DAILY
     Dates: start: 20100415
  6. ZOLPIDEM [Concomitant]
     Dosage: 1 DF, DAILY
     Dates: start: 20100415, end: 20100612

REACTIONS (10)
  - ALANINE AMINOTRANSFERASE INCREASED [None]
  - ASPARTATE AMINOTRANSFERASE INCREASED [None]
  - BLOOD ALKALINE PHOSPHATASE INCREASED [None]
  - C-REACTIVE PROTEIN INCREASED [None]
  - GAMMA-GLUTAMYLTRANSFERASE INCREASED [None]
  - RASH GENERALISED [None]
  - SKIN EXFOLIATION [None]
  - SYSTEMIC INFLAMMATORY RESPONSE SYNDROME [None]
  - URTICARIA [None]
  - VULVOVAGINAL MYCOTIC INFECTION [None]
